FAERS Safety Report 18891114 (Version 1)
Quarter: 2021Q1

REPORT INFORMATION
  Report Type: Spontaneous
  Country: US (occurrence: US)
  Receive Date: 20210215
  Receipt Date: 20210215
  Transmission Date: 20210420
  Serious: No
  Sender: FDA-Public Use
  Company Number: US-BEH-2021128339

PATIENT
  Sex: Female

DRUGS (2)
  1. HUMIRA [Concomitant]
     Active Substance: ADALIMUMAB
  2. HIZENTRA [Suspect]
     Active Substance: HUMAN IMMUNOGLOBULIN G
     Indication: BEHCET^S SYNDROME
     Dosage: 10 GRAM, QOW
     Route: 058
     Dates: start: 20190917

REACTIONS (3)
  - No adverse event [Unknown]
  - Off label use [Unknown]
  - Headache [Unknown]
